FAERS Safety Report 18176014 (Version 3)
Quarter: 2020Q3

REPORT INFORMATION
  Report Type: Report from Study
  Country: US (occurrence: US)
  Receive Date: 20200820
  Receipt Date: 20200903
  Transmission Date: 20201103
  Serious: Yes (Hospitalization)
  Sender: FDA-Public Use
  Company Number: US-AMGEN-USANI2020080736

PATIENT
  Age: 30 Year
  Sex: Male

DRUGS (1)
  1. BLINATUMOMAB [Suspect]
     Active Substance: BLINATUMOMAB
     Indication: ACUTE LYMPHOCYTIC LEUKAEMIA
     Dosage: 21.5 MICROGRAM, QD
     Route: 065
     Dates: start: 20181029

REACTIONS (1)
  - Pulmonary tuberculosis [Recovered/Resolved]

NARRATIVE: CASE EVENT DATE: 20181119
